FAERS Safety Report 18916256 (Version 1)
Quarter: 2021Q1

REPORT INFORMATION
  Report Type: Spontaneous
  Country: FR (occurrence: FR)
  Receive Date: 20210218
  Receipt Date: 20210218
  Transmission Date: 20210420
  Serious: Yes (Death)
  Sender: FDA-Public Use
  Company Number: FR-ALSI-2021000047

PATIENT
  Age: 87 Year
  Sex: Female

DRUGS (1)
  1. OXYGEN. [Suspect]
     Active Substance: OXYGEN
     Indication: CARDIAC ARREST
     Route: 055

REACTIONS (2)
  - Accidental underdose [Fatal]
  - Drug delivery system issue [Fatal]

NARRATIVE: CASE EVENT DATE: 20210204
